FAERS Safety Report 8067667-0 (Version None)
Quarter: 2012Q1

REPORT INFORMATION
  Report Type: 
  Country: None (occurrence: None)
  Receive Date: 20120124
  Receipt Date: 20111224
  Transmission Date: 20120608
  Serious: Yes (Other)
  Sender: FDA-Public Use
  Company Number: BR-ELI_LILLY_AND_COMPANY-BR201201005505

PATIENT
  Sex: Female

DRUGS (1)
  1. BYETTA [Suspect]
     Indication: INSULIN RESISTANCE
     Dosage: UNK, UNKNOWN
     Dates: start: 20111202

REACTIONS (8)
  - ACNE [None]
  - ANGIOEDEMA [None]
  - HYPOAESTHESIA ORAL [None]
  - OEDEMA PERIPHERAL [None]
  - TREMOR [None]
  - INFUSION SITE ERYTHEMA [None]
  - HYPERSENSITIVITY [None]
  - OROPHARYNGEAL PAIN [None]
